FAERS Safety Report 24207457 (Version 1)
Quarter: 2024Q3

REPORT INFORMATION
  Report Type: Spontaneous
  Country: FR (occurrence: FR)
  Receive Date: 20240814
  Receipt Date: 20240814
  Transmission Date: 20241017
  Serious: Yes (Hospitalization, Other)
  Sender: Haleon PLC
  Company Number: FR-AFSSAPS-PV2023000361

PATIENT
  Age: 15 Year
  Sex: Male
  Weight: 60 kg

DRUGS (2)
  1. ADVIL [Suspect]
     Active Substance: IBUPROFEN\IBUPROFEN SODIUM
     Indication: Odynophagia
     Dosage: 3 TABLETS
     Route: 048
     Dates: start: 20230321, end: 20230323
  2. ADVIL [Suspect]
     Active Substance: IBUPROFEN\IBUPROFEN SODIUM
     Indication: Ear pain
     Dosage: 3 TABLETS MINIMUM
     Route: 048
     Dates: start: 20230304, end: 20230313

REACTIONS (2)
  - Meningitis streptococcal [Recovering/Resolving]
  - Mastoiditis [Recovering/Resolving]

NARRATIVE: CASE EVENT DATE: 20230323
